FAERS Safety Report 21035684 (Version 1)
Quarter: 2022Q3

REPORT INFORMATION
  Report Type: Report from Study
  Country: CN (occurrence: CN)
  Receive Date: 20220701
  Receipt Date: 20220701
  Transmission Date: 20221027
  Serious: Yes (Hospitalization)
  Sender: FDA-Public Use
  Company Number: CN-BAYER-2021-197697

PATIENT
  Age: 65 Year
  Sex: Male
  Weight: 70 kg

DRUGS (19)
  1. RIVAROXABAN [Suspect]
     Active Substance: RIVAROXABAN
     Indication: Coronary artery disease
     Dosage: 2.5 MG, BID
     Route: 048
     Dates: start: 20210709, end: 20210819
  2. RIVAROXABAN [Suspect]
     Active Substance: RIVAROXABAN
     Indication: Peripheral arterial occlusive disease
     Route: 048
  3. RIVAROXABAN [Suspect]
     Active Substance: RIVAROXABAN
     Indication: Cardiovascular event prophylaxis
     Route: 048
  4. ASPIRIN [Suspect]
     Active Substance: ASPIRIN
     Indication: Coronary artery disease
     Dosage: 100 MG, QD
     Dates: start: 20210702
  5. ASPIRIN [Suspect]
     Active Substance: ASPIRIN
     Indication: Peripheral arterial occlusive disease
  6. ASPIRIN [Suspect]
     Active Substance: ASPIRIN
     Indication: Cardiovascular event prophylaxis
  7. CLOPIDOGREL [Concomitant]
     Active Substance: CLOPIDOGREL BISULFATE
     Dosage: 75 MG, QD
     Dates: start: 20210619, end: 20210701
  8. CLOPIDOGREL [Concomitant]
     Active Substance: CLOPIDOGREL BISULFATE
     Dosage: 75 MG, QD
     Dates: start: 20210702, end: 20210708
  9. ATORVASTATIN CALCIUM [Concomitant]
     Active Substance: ATORVASTATIN CALCIUM
     Dosage: 10 MG, QD
     Dates: start: 20210619
  10. ATORVASTATIN CALCIUM [Concomitant]
     Active Substance: ATORVASTATIN CALCIUM
     Dosage: 10 MG, QD
     Dates: start: 20210702
  11. IDEBENONE [Concomitant]
     Active Substance: IDEBENONE
     Dosage: 30 MG, TID
     Dates: start: 20210619, end: 20210702
  12. CITICOLINE SODIUM [Concomitant]
     Active Substance: CITICOLINE SODIUM
     Dosage: 100 MG, TID
     Dates: start: 20210619, end: 20210702
  13. BUTYLPHTHALIDE [Concomitant]
     Active Substance: BUTYLPHTHALIDE
     Dosage: 100 MG, TID
     Dates: start: 20210619, end: 20210702
  14. TIAN MA XING NAO [Concomitant]
     Dosage: 400 MG, TID
     Dates: start: 20210621, end: 20210702
  15. BETAHISTINE MESILATE [Concomitant]
     Active Substance: BETAHISTINE MESILATE
     Dosage: 6 MG, TID
     Dates: start: 20210621, end: 20210702
  16. HERBALS [Concomitant]
     Active Substance: HERBALS
     Dosage: 40 ML, TID
     Dates: start: 20210702, end: 20210702
  17. XING NAO JING [Concomitant]
     Dosage: 30 ML, QD
     Dates: start: 20210702, end: 20210702
  18. FONDAPARINUX SODIUM [Concomitant]
     Active Substance: FONDAPARINUX SODIUM
     Dosage: 2.5 MG, QD
     Dates: start: 20210707, end: 20210707
  19. FONDAPARINUX SODIUM [Concomitant]
     Active Substance: FONDAPARINUX SODIUM
     Dosage: 2.5 MG, QD
     Dates: start: 20210707, end: 20210709

REACTIONS (1)
  - Acute coronary syndrome [Recovered/Resolved with Sequelae]

NARRATIVE: CASE EVENT DATE: 20210809
